FAERS Safety Report 17801629 (Version 2)
Quarter: 2020Q2

REPORT INFORMATION
  Report Type: Spontaneous
  Country: IL (occurrence: IL)
  Receive Date: 20200519
  Receipt Date: 20200529
  Transmission Date: 20200714
  Serious: Yes (Other)
  Sender: FDA-Public Use
  Company Number: IL-AMGEN-ISRSP2020077749

PATIENT
  Age: 66 Year
  Sex: Male

DRUGS (20)
  1. CADEX [BICALUTAMIDE] [Concomitant]
     Dosage: 2 MILLIGRAM
  2. DISEPTYL FORTE [Concomitant]
     Dosage: UNK UNK, 2 TIMES/WK
  3. EXFORGE [Concomitant]
     Active Substance: AMLODIPINE BESYLATE\VALSARTAN
     Dosage: 180/10, MILLIGRAM, QD
  4. PLAVIX [Concomitant]
     Active Substance: CLOPIDOGREL BISULFATE
     Dosage: 0.75 MILLIGRAM, QD
  5. APIDRA [Concomitant]
     Active Substance: INSULIN GLULISINE
     Dosage: 0.5 MILLIGRAM, QD
  6. MAGNOX [Concomitant]
     Dosage: 520 MILLIGRAM, BID
  7. VITAMIN D [COLECALCIFEROL] [Concomitant]
     Active Substance: CHOLECALCIFEROL
     Dosage: 10 DROP, QD
  8. PROLIA [Suspect]
     Active Substance: DENOSUMAB
     Indication: PRODUCT USED FOR UNKNOWN INDICATION
     Dosage: UNK UNK, Q6MO
     Route: 065
  9. NORMOPRESAN [Concomitant]
     Dosage: 0.75 MILLIGRAM, BID
  10. ZOVIRAX [Concomitant]
     Active Substance: ACYCLOVIR
     Dosage: 400 MILLIGRAM, QD
  11. AREDIA [Concomitant]
     Active Substance: PAMIDRONATE DISODIUM
     Dosage: 30 MILLIGRAM, QMO
  12. AMLODIPINE [Concomitant]
     Active Substance: AMLODIPINE BESYLATE
     Dosage: 10 MILLIGRAM, QD
  13. CADEX [DOXAZOSIN MESILATE] [Concomitant]
     Dosage: 2 MILLIGRAM, QD
  14. XATRAL [Concomitant]
     Active Substance: ALFUZOSIN
     Dosage: 5 MILLIGRAM, QD
  15. SOMATULINE AUTOGEL [Suspect]
     Active Substance: LANREOTIDE ACETATE
     Indication: PRODUCT USED FOR UNKNOWN INDICATION
     Dosage: 120 MILLIGRAM, EVERY 28 DAYS
     Route: 058
  16. CARDILOC [Concomitant]
     Active Substance: BISOPROLOL FUMARATE
     Dosage: 2.5 MILLIGRAM, QD
  17. FOLIC ACID. [Concomitant]
     Active Substance: FOLIC ACID
     Dosage: 5 MILLIGRAM, QD
  18. OMEPRADEX [Concomitant]
     Active Substance: OMEPRAZOLE
     Dosage: 20 MILLIGRAM, QD
  19. VITAMINE B12 [Concomitant]
     Active Substance: CYANOCOBALAMIN
     Dosage: UNK
  20. GANFORT [Concomitant]
     Active Substance: BIMATOPROST\TIMOLOL
     Dosage: 5 MILLIGRAM

REACTIONS (9)
  - Weight decreased [Not Recovered/Not Resolved]
  - Diarrhoea [Recovered/Resolved]
  - Blood thyroid stimulating hormone decreased [Unknown]
  - Blood creatinine increased [Not Recovered/Not Resolved]
  - Haemoglobin decreased [Not Recovered/Not Resolved]
  - Decreased appetite [Not Recovered/Not Resolved]
  - Polyp [Unknown]
  - Pancreatic neuroendocrine tumour [Unknown]
  - Erythema [Unknown]

NARRATIVE: CASE EVENT DATE: 2018
